FAERS Safety Report 22610183 (Version 1)
Quarter: 2023Q2

REPORT INFORMATION
  Report Type: Report from Study
  Country: US (occurrence: US)
  Receive Date: 20230616
  Receipt Date: 20230616
  Transmission Date: 20230722
  Serious: No
  Sender: FDA-Public Use
  Company Number: US-002147023-NVSC2023US137196

PATIENT
  Sex: Female
  Weight: 63.96 kg

DRUGS (33)
  1. TRIAMCINOLONE ACETONIDE [Suspect]
     Active Substance: TRIAMCINOLONE ACETONIDE
     Indication: Psoriasis
     Dosage: UNK
     Route: 065
  2. BETAMETHASONE VALERATE [Suspect]
     Active Substance: BETAMETHASONE VALERATE
     Indication: Psoriasis
     Dosage: UNK
     Route: 065
  3. CLOBETASOL PROPIONATE [Suspect]
     Active Substance: CLOBETASOL PROPIONATE
     Indication: Psoriasis
     Dosage: UNK
     Route: 065
  4. NITROGLYCERIN [Suspect]
     Active Substance: NITROGLYCERIN
     Indication: Psoriasis
     Dosage: UNK
     Route: 065
  5. FLUOCINOLONE ACETONIDE [Suspect]
     Active Substance: FLUOCINOLONE ACETONIDE
     Indication: Psoriasis
     Dosage: UNK
     Route: 065
  6. ROSUVASTATIN [Suspect]
     Active Substance: ROSUVASTATIN
     Indication: Psoriasis
     Dosage: UNK
     Route: 065
  7. KETOCONAZOLE [Suspect]
     Active Substance: KETOCONAZOLE
     Indication: Psoriasis
     Dosage: UNK
     Route: 065
  8. CARVEDILOL [Suspect]
     Active Substance: CARVEDILOL
     Indication: Psoriasis
     Dosage: UNK
     Route: 065
  9. ENTRESTO [Suspect]
     Active Substance: SACUBITRIL\VALSARTAN
     Indication: Psoriasis
     Dosage: UNK
     Route: 065
  10. MOMETASONE [Suspect]
     Active Substance: MOMETASONE
     Indication: Psoriasis
     Dosage: UNK
     Route: 065
  11. METFORMIN HYDROCHLORIDE\SITAGLIPTIN PHOSPHATE [Suspect]
     Active Substance: METFORMIN HYDROCHLORIDE\SITAGLIPTIN PHOSPHATE
     Indication: Psoriasis
     Dosage: UNK
     Route: 065
  12. VASELINE PURE [Suspect]
     Active Substance: PETROLATUM
     Indication: Psoriasis
     Dosage: UNK
     Route: 065
  13. ACETAMINOPHEN [Suspect]
     Active Substance: ACETAMINOPHEN
     Indication: Psoriasis
     Dosage: UNK
     Route: 065
  14. ASPIRIN [Suspect]
     Active Substance: ASPIRIN
     Indication: Psoriasis
     Dosage: UNK
     Route: 065
  15. BUSPIRONE [Suspect]
     Active Substance: BUSPIRONE HYDROCHLORIDE
     Indication: Psoriasis
     Dosage: UNK
     Route: 065
  16. ETANERCEPT [Suspect]
     Active Substance: ETANERCEPT
     Indication: Psoriasis
     Dosage: UNK
     Route: 065
  17. DENOSUMAB [Suspect]
     Active Substance: DENOSUMAB
     Indication: Psoriasis
     Dosage: UNK
     Route: 065
  18. ERGOCALCIFEROL [Suspect]
     Active Substance: ERGOCALCIFEROL
     Indication: Psoriasis
     Dosage: UNK
     Route: 065
  19. FENOFIBRATE [Suspect]
     Active Substance: FENOFIBRATE
     Indication: Psoriasis
     Dosage: UNK
     Route: 065
  20. FERROUS SULFATE [Suspect]
     Active Substance: FERROUS SULFATE
     Indication: Psoriasis
     Dosage: UNK
     Route: 065
  21. GLIMEPIRIDE [Suspect]
     Active Substance: GLIMEPIRIDE
     Indication: Psoriasis
     Dosage: UNK
     Route: 065
  22. INSULIN GLARGINE [Suspect]
     Active Substance: INSULIN GLARGINE
     Indication: Psoriasis
     Dosage: UNK
     Route: 065
  23. PAROXETINE [Suspect]
     Active Substance: PAROXETINE
     Indication: Psoriasis
     Dosage: UNK
     Route: 065
  24. RISEDRONATE SODIUM [Suspect]
     Active Substance: RISEDRONATE SODIUM
     Indication: Psoriasis
     Dosage: UNK
     Route: 065
  25. IPRATROPIUM BROMIDE [Suspect]
     Active Substance: IPRATROPIUM BROMIDE\IPRATROPIUM BROMIDE ANHYDROUS
     Indication: Psoriasis
     Dosage: UNK
     Route: 065
  26. LEVOTHYROXINE [Suspect]
     Active Substance: LEVOTHYROXINE
     Indication: Psoriasis
     Dosage: UNK
     Route: 065
  27. SULFAMETHOXAZOLE AND TRIMETHOPRIM [Suspect]
     Active Substance: SULFAMETHOXAZOLE\TRIMETHOPRIM
     Indication: Psoriasis
     Dosage: UNK
     Route: 065
  28. LEVOCETIRIZINE [Suspect]
     Active Substance: LEVOCETIRIZINE
     Indication: Psoriasis
     Dosage: UNK
     Route: 065
  29. WARFARIN [Suspect]
     Active Substance: WARFARIN
     Indication: Psoriasis
     Dosage: UNK
     Route: 065
  30. CHOLECALCIFEROL [Suspect]
     Active Substance: CHOLECALCIFEROL
     Indication: Psoriasis
     Dosage: UNK
     Route: 065
  31. ARIPIPRAZOLE [Suspect]
     Active Substance: ARIPIPRAZOLE
     Indication: Psoriasis
     Dosage: UNK
     Route: 065
  32. VITAMIN D3 [Suspect]
     Active Substance: CHOLECALCIFEROL
     Indication: Psoriasis
     Dosage: UNK
     Route: 065
  33. SYNALAR [Suspect]
     Active Substance: FLUOCINOLONE ACETONIDE
     Indication: Psoriasis
     Dosage: UNK
     Route: 065

REACTIONS (9)
  - Psoriasis [Unknown]
  - Back pain [Unknown]
  - Skin mass [Unknown]
  - Rash erythematous [Unknown]
  - Seborrhoeic keratosis [Unknown]
  - Hyperkeratosis [Unknown]
  - Arthralgia [Unknown]
  - Macule [Unknown]
  - Rash [Unknown]
